FAERS Safety Report 4849676-5 (Version None)
Quarter: 2005Q4

REPORT INFORMATION
  Report Type: 
  Country: None (occurrence: None)
  Receive Date: 20051115
  Receipt Date: 20051007
  Transmission Date: 20060501
  Serious: No
  Sender: FDA-Public Use
  Company Number: S05-USA-04583-01

PATIENT
  Age: 77 Year
  Sex: Male

DRUGS (9)
  1. NAMENDA [Suspect]
     Indication: AMNESIA
     Dosage: 15 MG QD PO
     Route: 048
     Dates: start: 20051007
  2. NAMENDA [Suspect]
     Indication: AMNESIA
     Dosage: 5 MG QD PO
     Route: 048
     Dates: start: 20050923, end: 20050929
  3. NAMENDA [Suspect]
     Indication: AMNESIA
     Dosage: 5 MG BID PO
     Route: 048
     Dates: start: 20050930, end: 20051006
  4. COUMADIN [Concomitant]
  5. PREVACID [Concomitant]
  6. DIGOXIN [Concomitant]
  7. CARDIZEM [Concomitant]
  8. SINGULAIR [Concomitant]
  9. GLUCOTROL [Concomitant]

REACTIONS (1)
  - DIZZINESS [None]
